FAERS Safety Report 7405249-1 (Version None)
Quarter: 2011Q2

REPORT INFORMATION
  Report Type: 
  Country: None (occurrence: None)
  Receive Date: 20110411
  Receipt Date: 20110303
  Transmission Date: 20111010
  Serious: Yes (Hospitalization, Other)
  Sender: FDA-Public Use
  Company Number: US-BAYER-201036760NA

PATIENT
  Age: 22 Year
  Sex: Female
  Weight: 81.633 kg

DRUGS (23)
  1. OCELLA [Suspect]
     Indication: ACNE
  2. DIETARY SUPPLEMENTS [Concomitant]
  3. TYLENOL REGULAR [Concomitant]
     Indication: INSOMNIA
     Dosage: ALMOST DAILY
  4. BIAXIN [Concomitant]
  5. PONSTEL [Concomitant]
  6. ROCEPHIN [Concomitant]
     Dosage: UNK
  7. DONNATAL [Concomitant]
  8. DIFLUCAN [Concomitant]
  9. KETOROLAC [Concomitant]
  10. VITAMINS [Concomitant]
  11. DEPO-PROVERA [Concomitant]
     Dosage: ONCE EVERY 3 MONTH
     Dates: start: 20060914
  12. HYDROMORPHONE HCL [Concomitant]
  13. LOMOTIL [DIPHENOXYLATE HYDROCHLORIDE] [Concomitant]
  14. DOXYCYCLINE [Concomitant]
  15. TYLENOL REGULAR [Concomitant]
     Indication: MIGRAINE
  16. YAZ [Suspect]
     Indication: PRODUCT USED FOR UNKNOWN INDICATION
  17. DARVOCET [Concomitant]
  18. LEVSIN [Concomitant]
     Indication: NAUSEA
     Dosage: 1 TAB Q 4 HRS
     Dates: start: 20060914
  19. YASMIN [Suspect]
     Indication: ACNE
     Dosage: 1 TABLET DAILY
     Dates: start: 20050331, end: 20070311
  20. YASMIN [Suspect]
     Indication: CONTRACEPTION
  21. ONDANSETRON [Concomitant]
  22. ALLEGRA [Concomitant]
  23. LEVSIN [Concomitant]
     Indication: ABDOMINAL PAIN

REACTIONS (5)
  - ABDOMINAL PAIN LOWER [None]
  - CHOLELITHIASIS [None]
  - NEPHROLITHIASIS [None]
  - CHOLECYSTITIS ACUTE [None]
  - ABDOMINAL TENDERNESS [None]
